FAERS Safety Report 8790645 (Version 1)
Quarter: 2012Q4

REPORT INFORMATION
  Report Type: Spontaneous
  Country: US (occurrence: None)
  Receive Date: 20120912
  Receipt Date: 20120912
  Transmission Date: 20130627
  Serious: Yes (Disabling, Other)
  Sender: FDA-Public Use
  Company Number: None

PATIENT
  Sex: Female
  Weight: 81.65 kg

DRUGS (1)
  1. ATORVASTATIN [Suspect]
     Indication: HIGH CHOLESTEROL
     Route: 048
     Dates: start: 20110914, end: 20120609

REACTIONS (12)
  - Asthenia [None]
  - Fatigue [None]
  - Groin pain [None]
  - Arthralgia [None]
  - Myalgia [None]
  - Abdominal pain upper [None]
  - Musculoskeletal pain [None]
  - Pain in extremity [None]
  - Arthralgia [None]
  - Pain in extremity [None]
  - Asthenia [None]
  - Product substitution issue [None]
